FAERS Safety Report 9930728 (Version 1)
Quarter: 2014Q1

REPORT INFORMATION
  Report Type: Spontaneous
  Country: US (occurrence: US)
  Receive Date: 20140227
  Receipt Date: 20140227
  Transmission Date: 20141002
  Serious: No
  Sender: FDA-Public Use
  Company Number: US-AMGEN-USASP2014000710

PATIENT
  Age: 52 Year
  Sex: Male
  Weight: 90.25 kg

DRUGS (3)
  1. ENBREL [Suspect]
     Indication: PRODUCT USED FOR UNKNOWN INDICATION
     Dosage: 50 MG, QWK
     Route: 058
  2. LOVASTATIN [Concomitant]
     Dosage: 40 MG, UNK
  3. LISINOPRIL [Concomitant]
     Dosage: 20 MG, UNK

REACTIONS (1)
  - Therapeutic response decreased [Unknown]
